FAERS Safety Report 12334533 (Version 6)
Quarter: 2020Q4

REPORT INFORMATION
  Report Type: Spontaneous
  Country: US (occurrence: US)
  Receive Date: 20160504
  Receipt Date: 20201005
  Transmission Date: 20210113
  Serious: No
  Sender: FDA-Public Use
  Company Number: US-PFIZER INC-2015450905

PATIENT
  Age: 75 Year
  Sex: Female

DRUGS (52)
  1. LIPITOR [Concomitant]
     Active Substance: ATORVASTATIN CALCIUM
     Indication: HYPERCHOLESTEROLAEMIA
     Dosage: 20 MG, DAILY
     Route: 048
     Dates: start: 20151208
  2. CELEXA [Concomitant]
     Active Substance: CITALOPRAM HYDROBROMIDE
     Indication: DEPRESSION
     Dosage: 40 MG, DAILY
     Route: 048
  3. MIRALAX [Concomitant]
     Active Substance: POLYETHYLENE GLYCOL 3350
     Indication: CONSTIPATION
     Dosage: 17 G, AS NEEDED 3  TIMES DAILY
     Route: 048
     Dates: start: 20160105
  4. ZOSTAVAX [Concomitant]
     Active Substance: VARICELLA-ZOSTER VIRUS STRAIN OKA/MERCK LIVE ANTIGEN
     Dosage: PF, 19,400 UNIT/0.65 ML INJECTION
     Dates: start: 20150922
  5. ATORVASTATIN CALCIUM. [Concomitant]
     Active Substance: ATORVASTATIN CALCIUM
     Dosage: 20 MG, 1X/DAY
  6. LEVOTHYROXINE SODIUM. [Concomitant]
     Active Substance: LEVOTHYROXINE SODIUM
     Dosage: 50 UG, 1X/DAY
  7. CYANOCOBALAMIN. [Concomitant]
     Active Substance: CYANOCOBALAMIN
     Dosage: 100 UG, UNK
     Dates: start: 20151102
  8. REGLAN [Concomitant]
     Active Substance: METOCLOPRAMIDE HYDROCHLORIDE
     Dosage: 10 MG, UNK
     Dates: start: 20151012
  9. MORPHINE SULFATE. [Concomitant]
     Active Substance: MORPHINE SULFATE
     Dosage: 30 MG, USE AS DIRECTED 12HOURS
  10. MS CONTIN [Concomitant]
     Active Substance: MORPHINE SULFATE
     Indication: NEUROPATHY PERIPHERAL
     Dosage: 30 MG, 2X/DAY
     Route: 048
  11. PHENERGAN [Concomitant]
     Active Substance: PROMETHAZINE HYDROCHLORIDE
     Indication: NAUSEA
     Dosage: 25 MG, AS NEEDED Q4 HOURS
     Route: 048
     Dates: start: 20130726
  12. COLACE [Concomitant]
     Active Substance: DOCUSATE SODIUM
     Dosage: 100 MG, 1X/DAY
  13. WELLBUTRIN XL [Concomitant]
     Active Substance: BUPROPION HYDROCHLORIDE
     Dosage: 150 MG, DAILY
     Route: 048
     Dates: start: 20151011
  14. CYANOCOBALAMIN. [Concomitant]
     Active Substance: CYANOCOBALAMIN
     Dosage: 1,000 MCG/ML INJECTION AS DIRECTED
  15. FLUOROMETHOLONE. [Concomitant]
     Active Substance: FLUOROMETHOLONE
     Dosage: 1 DROP INTO BOTH EYES 2 TIMES DAILY
     Route: 047
     Dates: start: 20160211
  16. ENSURE [Concomitant]
     Active Substance: AMINO ACIDS\DEXTROSE\ELECTROLYTES NOS\SOYBEAN OIL\VITAMINS
     Dosage: 0.05- 1.5 GRAM-KCAL/ML LIQD
     Route: 048
  17. ENULOSE [Concomitant]
     Active Substance: LACTULOSE
     Dosage: 10 GRAM/15 ML SOLUTION
     Dates: start: 20160212
  18. ZOFRAN-ODT [Concomitant]
     Dosage: 8 MG, DAILY AS NEEDED
     Route: 048
  19. COMPAZINE [Concomitant]
     Active Substance: PROCHLORPERAZINE MALEATE
     Dosage: 10 MG, EVERY 6 HOURS AS NEEDED
     Route: 048
     Dates: start: 20160426
  20. AMBIEN [Concomitant]
     Active Substance: ZOLPIDEM TARTRATE
     Indication: INSOMNIA
     Dosage: 5 MG, AS NEEDED (NIGHTLY)
     Route: 048
  21. LYRICA [Suspect]
     Active Substance: PREGABALIN
     Indication: NEURALGIA
     Dosage: 150 MG, 2X/DAY
     Route: 048
     Dates: start: 20151208
  22. NORVASC [Concomitant]
     Active Substance: AMLODIPINE BESYLATE
     Dosage: 10 MG, DAILY
     Route: 048
     Dates: start: 20160426
  23. SYNTHROID [Concomitant]
     Active Substance: LEVOTHYROXINE SODIUM
     Indication: HYPOTHYROIDISM
     Dosage: 50 UG, DAILY (TAKE ON EMPTY STOMACH IN AM 30-60 MINUTES BEFORE EATING)
     Route: 048
  24. AMLODIPINE BESILATE [Concomitant]
     Active Substance: AMLODIPINE BESYLATE
     Dosage: 5 MG, 1X/DAY
  25. BASAGLAR [Concomitant]
     Active Substance: INSULIN GLARGINE
     Dosage: 50 IU, DAILY
     Route: 058
  26. VITAMIN B COMPLEX [Concomitant]
     Active Substance: CYANOCOBALAMIN\DEXPANTHENOL\NIACINAMIDE\PYRIDOXINE HYDROCHLORIDE\RIBOFLAVIN 5^-PHOSPHATE SODIUM\THIAMINE HYDROCHLORIDE\VITAMIN B COMPLEX
     Dosage: 1 DF, 1X/DAY
  27. LYRICA [Suspect]
     Active Substance: PREGABALIN
     Indication: GAIT DISTURBANCE
     Dosage: 150 MG, 2X/DAY
     Dates: start: 20160426
  28. LYRICA [Suspect]
     Active Substance: PREGABALIN
     Dosage: 150 MG, DAILY
     Route: 048
     Dates: start: 2010
  29. REFRESH OPTIVE [Concomitant]
     Active Substance: CARBOXYMETHYLCELLULOSE SODIUM\GLYCERIN
     Dosage: 1 DROP INTO BOTH EYES 4 TIMES AS NEEDED
  30. METADATE CD [Concomitant]
     Active Substance: METHYLPHENIDATE HYDROCHLORIDE
     Dosage: 60 MG DAILY (TAKE TWO CAPSULES BY MOUTH IN THE MORNING BEFORE BREAKFAST)
     Route: 048
     Dates: start: 20160426
  31. PRESERVISION AREDS [Concomitant]
     Active Substance: MINERALS\VITAMINS
     Dosage: 1 DF, 2X/DAY
     Route: 048
  32. ALPRAZOLAM. [Concomitant]
     Active Substance: ALPRAZOLAM
     Indication: ANXIETY
     Dosage: 1 MG, AS NEEDED (1 TABLET BID)
     Route: 048
  33. ZOFRAN [Concomitant]
     Active Substance: ONDANSETRON HYDROCHLORIDE
     Dosage: 8 MG, 4X/DAY
     Route: 048
  34. AMITIZA [Concomitant]
     Active Substance: LUBIPROSTONE
     Dosage: 24 UG, UNK
     Dates: start: 20150921
  35. RESTASIS [Concomitant]
     Active Substance: CYCLOSPORINE
     Dosage: 1 DROP INTO BOTH EYES 2 TIMES DAILY
     Route: 047
     Dates: start: 20160225
  36. BENTYL [Concomitant]
     Active Substance: DICYCLOMINE HYDROCHLORIDE
     Indication: ABDOMINAL PAIN UPPER
     Dosage: 20 MG, AS NEEDED
     Route: 048
  37. FLUZONE HIGH-DOSE 2015-16 [Concomitant]
     Dosage: 180 MCG/0.5 ML SYRG
     Dates: start: 20150922
  38. ALAWAY [Concomitant]
     Active Substance: KETOTIFEN FUMARATE
     Dosage: 0.025 % (0.035 %) OPHTHALMIC SOLUTION AT 1DROP 2 TIMES DAILY
     Route: 047
  39. DELTASONE [Concomitant]
     Active Substance: PREDNISONE
     Dosage: 20 MG, UNK
     Route: 048
  40. REFRESH OPTIVE ADVANCED OPHTH [Concomitant]
     Dosage: UNK UNK, 4X/DAY
     Route: 047
  41. LYRICA [Suspect]
     Active Substance: PREGABALIN
     Indication: NEUROPATHY PERIPHERAL
     Dosage: 150 MG, 2X/DAY
     Route: 048
  42. XANAX [Concomitant]
     Active Substance: ALPRAZOLAM
     Indication: ANXIETY
     Dosage: 1 MG, 2X/DAY
     Route: 048
  43. VICODIN [Concomitant]
     Active Substance: ACETAMINOPHEN\HYDROCODONE BITARTRATE
     Indication: PAIN
     Dosage: 1 TABLET ORAL EVERY 6 HOURS AS NEEDED [HYDROCODONE- 5MG]; [ACETAMINOPHEN-500MG]
     Route: 048
     Dates: start: 20160226
  44. LEVOTHROID [Concomitant]
     Active Substance: LEVOTHYROXINE SODIUM
     Indication: HYPOTHYROIDISM
     Dosage: 50 UG, DAILY (TAKE ON EMPTY STOMACH IN AM 30-60 MINUTES BEFORE EATING)
     Route: 048
  45. METADATE CD [Concomitant]
     Active Substance: METHYLPHENIDATE HYDROCHLORIDE
     Dosage: 20 MG, 3X/DAY
     Route: 048
  46. RITALIN [Concomitant]
     Active Substance: METHYLPHENIDATE HYDROCHLORIDE
     Dosage: 10 MG, DAILY (ONE TABLET AT 2 PM DAILY)
     Dates: start: 20160204
  47. PHENERGAN [Concomitant]
     Active Substance: PROMETHAZINE HYDROCHLORIDE
     Indication: VOMITING
  48. MORPHINE [Concomitant]
     Active Substance: MORPHINE
     Indication: PAIN
     Dosage: UNK
  49. METHAMPHETAMINE [Concomitant]
     Active Substance: METHAMPHETAMINE
     Indication: CENTRAL NERVOUS SYSTEM STIMULATION
     Dosage: UNK
  50. CITALOPRAM HYDROBROMIDE. [Concomitant]
     Active Substance: CITALOPRAM HYDROBROMIDE
     Dosage: 40 MG, 1X/DAY
  51. SENOKOT [Concomitant]
     Active Substance: SENNOSIDES
     Dosage: 3.6 MG, 1X/DAY
  52. SYSTANE (HYPROMELLOSE 2910 (4000 MPA.S)) [Concomitant]
     Active Substance: HYPROMELLOSE 2910 (4000 MPA.S)
     Dosage: 1 GTT, 4X/DAY (0.4-0.3 %)

REACTIONS (5)
  - Amnesia [Unknown]
  - Illness [Unknown]
  - Drug tolerance [Unknown]
  - Withdrawal syndrome [Unknown]
  - Nausea [Not Recovered/Not Resolved]

NARRATIVE: CASE EVENT DATE: 2015
